FAERS Safety Report 20555175 (Version 1)
Quarter: 2022Q1

REPORT INFORMATION
  Report Type: Spontaneous
  Country: US (occurrence: US)
  Receive Date: 20220304
  Receipt Date: 20220304
  Transmission Date: 20220423
  Serious: Yes (Other)
  Sender: FDA-Public Use
  Company Number: US-PURDUE-USA-2020-0284771

PATIENT
  Sex: Male

DRUGS (2)
  1. OXYCONTIN [Suspect]
     Active Substance: OXYCODONE HYDROCHLORIDE
     Indication: Product used for unknown indication
     Dosage: UNKNOWN
     Route: 048
  2. HEROIN [Suspect]
     Active Substance: DIAMORPHINE
     Indication: Product used for unknown indication
     Dosage: UNKNOWN
     Route: 065

REACTIONS (7)
  - Drug dependence [Recovered/Resolved]
  - Drug abuse [Recovered/Resolved]
  - Pain [Unknown]
  - Anxiety [Recovering/Resolving]
  - Emotional distress [Unknown]
  - Self esteem decreased [Recovering/Resolving]
  - Developmental delay [Recovering/Resolving]

NARRATIVE: CASE EVENT DATE: 20080101
